FAERS Safety Report 4272492-2 (Version None)
Quarter: 2004Q1

REPORT INFORMATION
  Report Type: 
  Country: None (occurrence: None)
  Receive Date: 20040115
  Receipt Date: 20040106
  Transmission Date: 20041129
  Serious: Yes (Hospitalization)
  Sender: FDA-Public Use
  Company Number: WAES 0401NOR00004

PATIENT
  Age: 89 Year
  Sex: Female

DRUGS (3)
  1. ASPIRIN AND MAGNESIUM OXIDE [Suspect]
     Indication: THROMBOSIS PROPHYLAXIS
     Route: 048
     Dates: start: 20020101
  2. ENOXAPARIN SODIUM [Concomitant]
     Indication: THROMBOSIS PROPHYLAXIS
     Route: 051
     Dates: start: 20031115, end: 20031125
  3. VIOXX [Suspect]
     Indication: POST PROCEDURAL PAIN
     Route: 048
     Dates: start: 20031120, end: 20031125

REACTIONS (2)
  - DUODENAL ULCER HAEMORRHAGE [None]
  - HAEMATEMESIS [None]
